FAERS Safety Report 12059015 (Version 1)
Quarter: 2016Q1

REPORT INFORMATION
  Report Type: Report from Study
  Country: US (occurrence: US)
  Receive Date: 20160209
  Receipt Date: 20160209
  Transmission Date: 20160526
  Serious: Yes (Other)
  Sender: FDA-Public Use
  Company Number: US-AMGEN-USASL2016013367

PATIENT
  Age: 78 Year
  Sex: Female

DRUGS (1)
  1. ENBREL [Suspect]
     Active Substance: ETANERCEPT
     Indication: ARTHRALGIA
     Dosage: 50 MG, QWK
     Route: 065
     Dates: start: 201509

REACTIONS (6)
  - Cardiac disorder [Unknown]
  - Tenderness [Unknown]
  - Acne [Recovering/Resolving]
  - Mass [Unknown]
  - Oropharyngeal pain [Unknown]
  - Ulcer [Unknown]

NARRATIVE: CASE EVENT DATE: 201509
